FAERS Safety Report 5569620-5 (Version None)
Quarter: 2007Q4

REPORT INFORMATION
  Report Type: 
  Country: None (occurrence: None)
  Receive Date: 20071218
  Receipt Date: 20071204
  Transmission Date: 20080405
  Serious: Yes (Hospitalization)
  Sender: FDA-Public Use
  Company Number: 18024

PATIENT
  Age: 53 Year
  Sex: Female

DRUGS (3)
  1. CYTARABINE [Suspect]
     Indication: CHEMOTHERAPY
     Dosage: 2 MG/M2 FREQ IV
     Route: 042
  2. FLUDARABINE PHOSPHATE [Suspect]
     Indication: CHEMOTHERAPY
     Dosage: 30 MG/M2 FREQ IV
     Route: 042
  3. NEUPOGEN [Suspect]
     Indication: CHEMOTHERAPY
     Dosage: 263 ?G FREQ SC
     Route: 058

REACTIONS (1)
  - NEUTROPENIA [None]
